FAERS Safety Report 21561773 (Version 1)
Quarter: 2022Q4

REPORT INFORMATION
  Report Type: Spontaneous
  Country: PL (occurrence: PL)
  Receive Date: 20221107
  Receipt Date: 20221107
  Transmission Date: 20230113
  Serious: Yes (Other)
  Sender: FDA-Public Use
  Company Number: PL-002147023-NVSC2022PL242615

PATIENT

DRUGS (2)
  1. RUXOLITINIB [Suspect]
     Active Substance: RUXOLITINIB
     Indication: Myelofibrosis
     Dosage: 10 MG, BID (2X10 MG)
     Route: 065
     Dates: start: 202101
  2. RUXOLITINIB [Suspect]
     Active Substance: RUXOLITINIB
     Dosage: 5 MG, QD, (2X 5 MG)
     Route: 065

REACTIONS (3)
  - Leukopenia [Unknown]
  - Splenomegaly [Unknown]
  - Thrombocytopenia [Recovering/Resolving]
